FAERS Safety Report 9333400 (Version 1)
Quarter: 2013Q2

REPORT INFORMATION
  Report Type: Spontaneous
  Country: US (occurrence: US)
  Receive Date: 20130606
  Receipt Date: 20130606
  Transmission Date: 20140414
  Serious: No
  Sender: FDA-Public Use
  Company Number: US-GLAXOSMITHKLINE-A0995299A

PATIENT
  Age: 61 Year
  Sex: Female

DRUGS (7)
  1. LAMICTAL [Suspect]
     Indication: DEPRESSION
     Dosage: 100MG PER DAY
     Route: 048
     Dates: start: 200811
  2. CIPRO [Concomitant]
  3. CELEXA [Concomitant]
  4. LEXAPRO [Concomitant]
  5. KLONOPIN [Concomitant]
  6. BLOOD PRESSURE MEDICATION [Concomitant]
  7. UNKNOWN MEDICATION [Concomitant]

REACTIONS (6)
  - Eructation [Recovering/Resolving]
  - Rash erythematous [Recovered/Resolved]
  - Nausea [Unknown]
  - Insomnia [Unknown]
  - Dysphagia [Unknown]
  - Fatigue [Unknown]
